FAERS Safety Report 11404959 (Version 1)
Quarter: 2015Q3

REPORT INFORMATION
  Report Type: Spontaneous
  Country: IL (occurrence: IL)
  Receive Date: 20150821
  Receipt Date: 20150821
  Transmission Date: 20151125
  Serious: Yes (Hospitalization, Other)
  Sender: FDA-Public Use
  Company Number: IL-KAMADA LIMITED-2015IL007120

PATIENT

DRUGS (12)
  1. ACYCLOVIR                          /00587301/ [Concomitant]
     Active Substance: ACYCLOVIR
  2. GLASSIA [Suspect]
     Active Substance: .ALPHA.1-PROTEINASE INHIBITOR HUMAN
     Indication: GRAFT VERSUS HOST DISEASE
     Dosage: 90 MG/KG
     Dates: start: 20150706, end: 20150706
  3. CYCLOSPORINE. [Concomitant]
     Active Substance: CYCLOSPORINE
  4. GLASSIA [Suspect]
     Active Substance: .ALPHA.1-PROTEINASE INHIBITOR HUMAN
     Dosage: 60 MG/KG, EVERY OTHER DAY
     Dates: end: 20150720
  5. PREDNISONE. [Concomitant]
     Active Substance: PREDNISONE
  6. CELLCEPT [Concomitant]
     Active Substance: MYCOPHENOLATE MOFETIL\MYCOPHENOLATE MOFETIL HYDROCHLORIDE
  7. CIPRALEX [Concomitant]
     Active Substance: ESCITALOPRAM OXALATE
  8. RAFASAL [Concomitant]
  9. VALGANCICLOVIR [Concomitant]
     Active Substance: VALGANCICLOVIR
  10. RESPRIM [Concomitant]
  11. RAFAPEN [Concomitant]
  12. VORICONAZOLE. [Concomitant]
     Active Substance: VORICONAZOLE

REACTIONS (6)
  - Blood count abnormal [Unknown]
  - Diarrhoea [Not Recovered/Not Resolved]
  - Pyrexia [Recovered/Resolved]
  - Melaena [Unknown]
  - Therapeutic response unexpected [Unknown]
  - Off label use [Unknown]

NARRATIVE: CASE EVENT DATE: 20150706
